FAERS Safety Report 13306984 (Version 1)
Quarter: 2017Q1

REPORT INFORMATION
  Report Type: Spontaneous
  Country: US (occurrence: US)
  Receive Date: 20170308
  Receipt Date: 20170308
  Transmission Date: 20170428
  Serious: No
  Sender: FDA-Public Use
  Company Number: US-TEVA-739543ACC

PATIENT
  Sex: Female
  Weight: 61.29 kg

DRUGS (1)
  1. PLAN B ONE-STEP [Suspect]
     Active Substance: LEVONORGESTREL
     Indication: POST COITAL CONTRACEPTION
     Dates: start: 20170131, end: 20170131

REACTIONS (4)
  - Body temperature increased [Recovered/Resolved]
  - Abdominal distension [Recovered/Resolved]
  - Affective disorder [Recovered/Resolved]
  - Back pain [Unknown]
